FAERS Safety Report 8341276-8 (Version None)
Quarter: 2012Q2

REPORT INFORMATION
  Report Type: 
  Country: None (occurrence: None)
  Receive Date: 20120507
  Receipt Date: 20120420
  Transmission Date: 20120825
  Serious: Yes (Death, Hospitalization)
  Sender: FDA-Public Use
  Company Number: GB-ROCHE-1053454

PATIENT
  Sex: Female
  Weight: 72.5 kg

DRUGS (11)
  1. LISINOPRIL [Concomitant]
     Dates: end: 20120323
  2. LISINOPRIL [Concomitant]
     Dates: end: 20120323
  3. ROSUVASTATIN [Concomitant]
     Dates: end: 20120328
  4. ROSUVASTATIN [Concomitant]
     Dates: end: 20120328
  5. METOPROLOL TARTRATE [Concomitant]
     Dates: end: 20120325
  6. AMLODIPINE [Concomitant]
     Dates: end: 20120323
  7. VEMURAFENIB [Suspect]
     Indication: MALIGNANT MELANOMA
     Dosage: DATOE OF LAST DOSE PRIOR TO SAE 22/MAR/2012 , PERMANENTLY DISCONTINUED ON 26/MAR/2012.
     Route: 048
     Dates: start: 20111129, end: 20120326
  8. DOXAZOSIN MESYLATE [Concomitant]
     Dates: end: 20120323
  9. AMLODIPINE [Concomitant]
     Dates: end: 20120323
  10. DOXAZOSIN MESYLATE [Concomitant]
     Dates: end: 20120323
  11. METOPROLOL TARTRATE [Concomitant]
     Dates: end: 20120325

REACTIONS (1)
  - TORSADE DE POINTES [None]
